FAERS Safety Report 8391317-7 (Version None)
Quarter: 2012Q2

REPORT INFORMATION
  Report Type: 
  Country: None (occurrence: None)
  Receive Date: 20120529
  Receipt Date: 20120517
  Transmission Date: 20120825
  Serious: Yes (Hospitalization, Other)
  Sender: FDA-Public Use
  Company Number: JP-JNJFOC-20120403771

PATIENT
  Sex: Male
  Weight: 72 kg

DRUGS (9)
  1. ABILIFY [Concomitant]
     Route: 048
     Dates: start: 20120302
  2. AMLODIPINE BESYLATE [Concomitant]
     Indication: HYPERTENSION
     Route: 048
  3. ABILIFY [Concomitant]
     Route: 048
     Dates: start: 20120217, end: 20120223
  4. INVEGA [Suspect]
     Indication: SCHIZOPHRENIA, PARANOID TYPE
     Route: 048
     Dates: start: 20120224, end: 20120302
  5. INVEGA [Suspect]
     Route: 048
     Dates: start: 20111126, end: 20120223
  6. CANDESARTAN CILEXETIL [Concomitant]
     Indication: HYPERTENSION
     Route: 048
  7. RISPERDAL [Suspect]
     Indication: SCHIZOPHRENIA, PARANOID TYPE
     Route: 030
  8. EPIRENAT [Concomitant]
     Indication: SCHIZOPHRENIA, PARANOID TYPE
     Route: 048
     Dates: start: 20120217
  9. ABILIFY [Concomitant]
     Indication: SCHIZOPHRENIA, PARANOID TYPE
     Route: 048
     Dates: start: 20120224

REACTIONS (2)
  - GLUCOSE TOLERANCE INCREASED [None]
  - PSYCHIATRIC SYMPTOM [None]
